FAERS Safety Report 12100079 (Version 1)
Quarter: 2016Q1

REPORT INFORMATION
  Report Type: Spontaneous
  Country: US (occurrence: None)
  Receive Date: 20160219
  Receipt Date: 20160219
  Transmission Date: 20160526
  Serious: No
  Sender: FDA-Public Use
  Company Number: None

PATIENT
  Age: 48 Year
  Sex: Female
  Weight: 63.5 kg

DRUGS (18)
  1. ENBREL [Concomitant]
     Active Substance: ETANERCEPT
  2. CLONAZEPAM. [Concomitant]
     Active Substance: CLONAZEPAM
  3. ATENOLOL. [Concomitant]
     Active Substance: ATENOLOL
  4. MULTIVITAMIN [Concomitant]
     Active Substance: VITAMINS
  5. TENS [Concomitant]
  6. ADDERALL [Concomitant]
     Active Substance: AMPHETAMINE ASPARTATE\AMPHETAMINE SULFATE\DEXTROAMPHETAMINE SACCHARATE\DEXTROAMPHETAMINE SULFATE
  7. LIDOCAINE PATCH  5% MYLAN [Suspect]
     Active Substance: LIDOCAINE
     Indication: SPINAL DISORDER
     Dosage: 1 PATCH 12 HOURS ON /12 OFF APPLIED TO A SURFACE, USUALLY THE SKIN
     Dates: start: 20151117, end: 20151213
  8. DELESTROGEN [Concomitant]
     Active Substance: ESTRADIOL VALERATE
  9. CONCERTA [Concomitant]
     Active Substance: METHYLPHENIDATE HYDROCHLORIDE
  10. ZEGERID [Concomitant]
     Active Substance: OMEPRAZOLE\SODIUM BICARBONATE
  11. TIZANIDINE. [Concomitant]
     Active Substance: TIZANIDINE
  12. CITRUCEL [Concomitant]
     Active Substance: METHYLCELLULOSE (4000 MPA.S)
  13. NORCO [Concomitant]
     Active Substance: ACETAMINOPHEN\HYDROCODONE BITARTRATE
  14. LISINOPRIL. [Concomitant]
     Active Substance: LISINOPRIL
  15. GABAPENTIN. [Concomitant]
     Active Substance: GABAPENTIN
  16. SIMVASTATIN. [Concomitant]
     Active Substance: SIMVASTATIN
  17. SINGULAIR [Concomitant]
     Active Substance: MONTELUKAST SODIUM
  18. ZALEPLON. [Concomitant]
     Active Substance: ZALEPLON

REACTIONS (4)
  - Product substitution issue [None]
  - Drug ineffective [None]
  - Pain [None]
  - Product adhesion issue [None]

NARRATIVE: CASE EVENT DATE: 20151117
